FAERS Safety Report 19393210 (Version 2)
Quarter: 2021Q2

REPORT INFORMATION
  Report Type: Spontaneous
  Country: ES (occurrence: ES)
  Receive Date: 20210609
  Receipt Date: 20210618
  Transmission Date: 20210717
  Serious: Yes (Other)
  Sender: FDA-Public Use
  Company Number: ES-BIOGEN-2021BI01017804

PATIENT
  Sex: Female

DRUGS (3)
  1. SPINRAZA [Suspect]
     Active Substance: NUSINERSEN
     Indication: SPINAL MUSCULAR ATROPHY
     Dosage: 24 MONTHS OF TREATMENT
     Route: 065
     Dates: start: 201805, end: 202005
  2. SPINRAZA [Suspect]
     Active Substance: NUSINERSEN
     Dosage: RESTARTED 3 AND A HALF MONTHS AFTER WITHDRAWAL OF RISDIPLAM. CURRENTLY 2 DOSES.
     Route: 065
  3. RISDIPLAM. [Suspect]
     Active Substance: RISDIPLAM
     Indication: PRODUCT USED FOR UNKNOWN INDICATION
     Route: 065

REACTIONS (1)
  - Cutaneous vasculitis [Recovered/Resolved]
